FAERS Safety Report 7970625-5 (Version None)
Quarter: 2011Q4

REPORT INFORMATION
  Report Type: 
  Country: None (occurrence: None)
  Receive Date: 20111212
  Receipt Date: 20111206
  Transmission Date: 20120403
  Serious: No
  Sender: FDA-Public Use
  Company Number: US-BAYER-2011-118375

PATIENT

DRUGS (2)
  1. THERAFLU [Suspect]
  2. ALEVE (CAPLET) [Suspect]
     Dosage: UNK

REACTIONS (2)
  - EUPHORIC MOOD [None]
  - FEELING ABNORMAL [None]
